FAERS Safety Report 6837888-0 (Version None)
Quarter: 2010Q3

REPORT INFORMATION
  Report Type: 
  Country: None (occurrence: None)
  Receive Date: 20100713
  Receipt Date: 20070524
  Transmission Date: 20110219
  Serious: No
  Sender: FDA-Public Use
  Company Number: US-PFIZER INC-2007043024

PATIENT
  Age: 64 Year
  Sex: Male
  Weight: 113.4 kg

DRUGS (11)
  1. CHANTIX [Suspect]
     Indication: SMOKING CESSATION THERAPY
     Dates: start: 20070522
  2. MORPHINE [Interacting]
     Indication: PAIN
  3. OXYCONTIN [Concomitant]
     Dates: end: 20070501
  4. GABAPENTIN [Concomitant]
  5. ENALAPRIL MALEATE [Concomitant]
  6. TEMAZEPAM [Concomitant]
  7. OXYCODONE HCL [Concomitant]
     Indication: BREAKTHROUGH PAIN
  8. FUROSEMIDE [Concomitant]
  9. VENLAFAXINE HYDROCHLORIDE [Concomitant]
  10. ISOSORBIDE [Concomitant]
  11. LORAZEPAM [Concomitant]

REACTIONS (7)
  - BREAKTHROUGH PAIN [None]
  - DIZZINESS [None]
  - DRUG INTERACTION [None]
  - FATIGUE [None]
  - INSOMNIA [None]
  - PAIN [None]
  - SOMNOLENCE [None]
